FAERS Safety Report 5086896-1 (Version None)
Quarter: 2006Q3

REPORT INFORMATION
  Report Type: 
  Country: None (occurrence: None)
  Receive Date: 20060823
  Receipt Date: 20060811
  Transmission Date: 20061208
  Serious: Yes (Disabling)
  Sender: FDA-Public Use
  Company Number: US-MERCK-0608USA02818

PATIENT
  Age: 75 Year
  Sex: Female

DRUGS (5)
  1. FOSAMAX [Suspect]
     Indication: OSTEOPOROSIS
     Route: 048
     Dates: end: 20060807
  2. ASPIRIN [Concomitant]
     Route: 065
  3. PRAVACHOL [Concomitant]
     Route: 065
  4. ZETIA [Concomitant]
     Route: 065
  5. NIASPAN [Concomitant]
     Route: 065

REACTIONS (3)
  - DYSPHONIA [None]
  - FOREIGN BODY TRAUMA [None]
  - LARYNX IRRITATION [None]
